FAERS Safety Report 4549962-2 (Version None)
Quarter: 2005Q1

REPORT INFORMATION
  Report Type: 
  Country: None (occurrence: None)
  Receive Date: 20050110
  Receipt Date: 20041227
  Transmission Date: 20050727
  Serious: Yes (Other)
  Sender: FDA-Public Use
  Company Number: 2004-123821-NL

PATIENT
  Age: 34 Year
  Sex: Female
  Weight: 69.4 kg

DRUGS (5)
  1. NUVARING [Suspect]
     Indication: CONTRACEPTION
     Dosage: VAGINAL
     Route: 067
     Dates: start: 20040901, end: 20041227
  2. ZOLOFT [Concomitant]
  3. ZYRTEC [Concomitant]
  4. IBUPROFEN [Concomitant]
  5. BENADRYL [Concomitant]

REACTIONS (2)
  - ENDODONTIC PROCEDURE [None]
  - URTICARIA [None]
